FAERS Safety Report 24701314 (Version 1)
Quarter: 2024Q4

REPORT INFORMATION
  Report Type: Report from Study
  Country: CA (occurrence: CA)
  Receive Date: 20241205
  Receipt Date: 20241205
  Transmission Date: 20250114
  Serious: Yes (Hospitalization)
  Sender: PFIZER
  Company Number: CA-PFIZER INC-202400314370

PATIENT
  Sex: Male
  Weight: 104 kg

DRUGS (4)
  1. RITUXIMAB [Suspect]
     Active Substance: RITUXIMAB
     Indication: Non-Hodgkin^s lymphoma unspecified histology indolent
     Dosage: UNK
     Route: 042
  2. BENDAMUSTINE HYDROCHLORIDE [Suspect]
     Active Substance: BENDAMUSTINE HYDROCHLORIDE
     Indication: Non-Hodgkin^s lymphoma unspecified histology indolent
  3. AVELOX [Suspect]
     Active Substance: MOXIFLOXACIN HYDROCHLORIDE
     Indication: Pneumonia
     Dosage: 400 MG, 1X/DAY
     Route: 048
  4. COPANLISIB [Suspect]
     Active Substance: COPANLISIB
     Indication: Non-Hodgkin^s lymphoma unspecified histology indolent
     Dosage: UNK
     Route: 042

REACTIONS (1)
  - Drug hypersensitivity [Recovered/Resolved]
